FAERS Safety Report 13503046 (Version 1)
Quarter: 2017Q2

REPORT INFORMATION
  Report Type: Spontaneous
  Country: CN (occurrence: CN)
  Receive Date: 20170502
  Receipt Date: 20170502
  Transmission Date: 20170830
  Serious: Yes (Other)
  Sender: FDA-Public Use
  Company Number: CN-ARALEZ PHARMACEUTICALS R+D INC.-ARA-TP-CN-2017-497

PATIENT
  Age: 70 Year
  Sex: Male

DRUGS (2)
  1. METOPROLOL SUCCINATE. [Suspect]
     Active Substance: METOPROLOL SUCCINATE
     Indication: TACHYCARDIA
     Route: 048
     Dates: start: 20161223, end: 20161227
  2. METOPROLOL SUCCINATE. [Suspect]
     Active Substance: METOPROLOL SUCCINATE
     Indication: VENTRICULAR REMODELLING

REACTIONS (4)
  - Bronchospasm [Unknown]
  - Brain natriuretic peptide increased [Unknown]
  - Blood pressure increased [Unknown]
  - Asthma [Unknown]

NARRATIVE: CASE EVENT DATE: 20161227
